FAERS Safety Report 9113140 (Version 1)
Quarter: 2013Q1

REPORT INFORMATION
  Report Type: Spontaneous
  Country: US (occurrence: US)
  Receive Date: 20130211
  Receipt Date: 20130211
  Transmission Date: 20140127
  Serious: Yes (Other)
  Sender: FDA-Public Use
  Company Number: US-AMGEN-USASP2013007825

PATIENT
  Age: 76 Year
  Sex: Female

DRUGS (1)
  1. ENBREL [Suspect]
     Indication: RHEUMATOID ARTHRITIS
     Dosage: 50 MG, QWK
     Dates: start: 2009

REACTIONS (4)
  - Oxygen saturation decreased [Not Recovered/Not Resolved]
  - Bronchitis [Recovered/Resolved]
  - Head discomfort [Recovered/Resolved]
  - Pharyngitis streptococcal [Not Recovered/Not Resolved]
